FAERS Safety Report 9544256 (Version 2)
Quarter: 2013Q3

REPORT INFORMATION
  Report Type: Spontaneous
  Country: US (occurrence: US)
  Receive Date: 20130923
  Receipt Date: 20130923
  Transmission Date: 20140515
  Serious: No
  Sender: FDA-Public Use
  Company Number: US-ASTRAZENECA-2013SE51480

PATIENT
  Age: 803 Month
  Sex: Female
  Weight: 63.5 kg

DRUGS (3)
  1. ZESTRIL [Suspect]
     Indication: HYPERTENSION
     Route: 048
     Dates: start: 1988
  2. ZESTRIL [Suspect]
     Indication: HYPERTENSION
     Route: 048
     Dates: start: 1988, end: 20130707
  3. CALCIUM CITRATE [Concomitant]

REACTIONS (16)
  - Arthropod bite [Unknown]
  - Cellulitis [Unknown]
  - Lyme disease [Unknown]
  - Sensation of heaviness [Not Recovered/Not Resolved]
  - Gait disturbance [Unknown]
  - Polyuria [Unknown]
  - Micturition urgency [Unknown]
  - Liver disorder [Unknown]
  - Adverse event [Unknown]
  - Dermatitis bullous [Unknown]
  - Nausea [Recovered/Resolved with Sequelae]
  - Dizziness [Recovered/Resolved with Sequelae]
  - Headache [Not Recovered/Not Resolved]
  - Abdominal pain upper [Recovered/Resolved]
  - Pyrexia [Recovered/Resolved]
  - Intentional drug misuse [Recovered/Resolved]
